FAERS Safety Report 6126569 (Version 6)
Quarter: 2014Q3

REPORT INFORMATION
  Report Type: Spontaneous
  Country: NO (occurrence: NO)
  Receive Date: 20060913
  Receipt Date: 20140806
  Transmission Date: 20150326
  Serious: Yes (Life-Threatening, Hospitalization)
  Sender: FDA-Public Use
  Company Number: NO-JNJFOC-20060900473

PATIENT
  Age: 18 Year
  Sex: Male
  Weight: 139 kg

DRUGS (11)
  1. SEROQUEL [Suspect]
     Active Substance: QUETIAPINE FUMARATE
     Indication: MENTAL DISORDER
     Dosage: 300MG IN THE MORNING, 600MG IN THE EVENING
     Route: 048
     Dates: start: 200504
  2. SEROQUEL [Suspect]
     Active Substance: QUETIAPINE FUMARATE
     Indication: MENTAL DISORDER
     Route: 048
     Dates: start: 20060810, end: 20060811
  3. SEROQUEL [Suspect]
     Active Substance: QUETIAPINE FUMARATE
     Indication: MENTAL DISORDER
     Dosage: 300MG MORNING, 600MG EVENING
     Route: 048
     Dates: start: 200504, end: 200608
  4. CONCERTA [Suspect]
     Active Substance: METHYLPHENIDATE HYDROCHLORIDE
     Indication: ATTENTION DEFICIT/HYPERACTIVITY DISORDER
     Dosage: 36MG IN THE MORNING, 18MG IN THE EVENING
     Route: 048
     Dates: start: 20051031
  5. CONCERTA [Suspect]
     Active Substance: METHYLPHENIDATE HYDROCHLORIDE
     Indication: ATTENTION DEFICIT/HYPERACTIVITY DISORDER
     Dosage: 36MG IN THE MORNING, 18MG IN THE EVENING
     Route: 048
     Dates: start: 200506
  6. SEROQUEL [Suspect]
     Active Substance: QUETIAPINE FUMARATE
     Indication: MENTAL DISORDER
     Dosage: 300MG IN THE MORNING, 600MG IN THE EVENING
     Route: 048
     Dates: end: 20050612
  7. SEROQUEL [Suspect]
     Active Substance: QUETIAPINE FUMARATE
     Indication: MENTAL DISORDER
     Dosage: 900MG+300 MG
     Route: 048
     Dates: start: 20060209, end: 20060803
  8. SEROQUEL [Suspect]
     Active Substance: QUETIAPINE FUMARATE
     Indication: MENTAL DISORDER
     Dosage: 900MG+300 MG
     Route: 048
     Dates: start: 20060804
  9. CONCERTA [Suspect]
     Active Substance: METHYLPHENIDATE HYDROCHLORIDE
     Indication: ATTENTION DEFICIT/HYPERACTIVITY DISORDER
     Dosage: 36MG IN THE MORNING, 18MG IN THE EVENING
     Route: 048
     Dates: start: 20051003, end: 20051030
  10. SEROQUEL [Suspect]
     Active Substance: QUETIAPINE FUMARATE
     Indication: MENTAL DISORDER
     Dosage: 900MG+300 MG
     Route: 048
     Dates: start: 20050613, end: 20050822
  11. CONCERTA [Suspect]
     Active Substance: METHYLPHENIDATE HYDROCHLORIDE
     Indication: ATTENTION DEFICIT/HYPERACTIVITY DISORDER
     Dosage: 36MG IN THE MORNING, 18MG IN THE EVENING
     Route: 048
     Dates: start: 20060810, end: 20060811

REACTIONS (1)
  - Congestive cardiomyopathy [Recovered/Resolved with Sequelae]

NARRATIVE: CASE EVENT DATE: 20060801
